FAERS Safety Report 9152989 (Version 1)
Quarter: 2013Q1

REPORT INFORMATION
  Report Type: Spontaneous
  Country: US (occurrence: US)
  Receive Date: 20130310
  Receipt Date: 20130310
  Transmission Date: 20140127
  Serious: Yes (Death, Other)
  Sender: FDA-Public Use
  Company Number: US-TEVA-390199USA

PATIENT
  Sex: Female

DRUGS (2)
  1. LAMOTRIGINE [Suspect]
  2. QUETIAPINE [Suspect]

REACTIONS (2)
  - Death [Fatal]
  - Accidental exposure to product [Unknown]
